FAERS Safety Report 21138761 (Version 1)
Quarter: 2022Q3

REPORT INFORMATION
  Report Type: Other
  Country: CN (occurrence: CN)
  Receive Date: 20220727
  Receipt Date: 20220727
  Transmission Date: 20221026
  Serious: Yes (Hospitalization)
  Sender: FDA-Public Use
  Company Number: CN-GE HEALTHCARE-2022CSU005074

PATIENT
  Age: 70 Year
  Sex: Male
  Weight: 76 kg

DRUGS (5)
  1. OMNIPAQUE [Suspect]
     Active Substance: IOHEXOL
     Indication: Diagnostic procedure
     Dosage: 100 ML, SINGLE
     Route: 041
     Dates: start: 20220708, end: 20220708
  2. OMNIPAQUE [Suspect]
     Active Substance: IOHEXOL
     Indication: Abdominal pain
  3. OMNIPAQUE [Suspect]
     Active Substance: IOHEXOL
     Indication: Gastric polyps
  4. OMNIPAQUE [Suspect]
     Active Substance: IOHEXOL
     Indication: Large intestine polyp
  5. OMNIPAQUE [Suspect]
     Active Substance: IOHEXOL
     Indication: Skin test
     Dosage: UNK UNK, SINGLE
     Route: 023
     Dates: start: 20220708, end: 20220708

REACTIONS (3)
  - Rash [Recovering/Resolving]
  - Urticaria [Recovering/Resolving]
  - Off label use [Recovered/Resolved]

NARRATIVE: CASE EVENT DATE: 20220708
